FAERS Safety Report 10265814 (Version 1)
Quarter: 2014Q2

REPORT INFORMATION
  Report Type: Report from Study
  Country: US (occurrence: US)
  Receive Date: 20140627
  Receipt Date: 20140627
  Transmission Date: 20141212
  Serious: Yes (Life-Threatening, Other)
  Sender: FDA-Public Use
  Company Number: US-GLAXOSMITHKLINE-A1078641A

PATIENT
  Age: 18 Year
  Sex: Male
  Weight: 71 kg

DRUGS (11)
  1. NELARABINE [Suspect]
     Indication: NON-HODGKIN^S LYMPHOMA
     Dosage: 650MGM2 CYCLIC
     Route: 042
     Dates: start: 20140118
  2. MERCAPTOPURINE [Suspect]
     Indication: NON-HODGKIN^S LYMPHOMA
     Dosage: 60MGM2 CYCLIC
     Route: 048
  3. METHOTREXATE [Suspect]
     Indication: NON-HODGKIN^S LYMPHOMA
     Route: 037
  4. CYCLOPHOSPHAMIDE [Suspect]
     Indication: NON-HODGKIN^S LYMPHOMA
     Dosage: 1000MGM2 CYCLIC
     Route: 042
  5. CYTARABINE [Suspect]
     Indication: NON-HODGKIN^S LYMPHOMA
     Dosage: 75MGM2 CYCLIC
  6. VINCRISTINE [Suspect]
     Indication: NON-HODGKIN^S LYMPHOMA
     Dosage: 1.5MGM2 CYCLIC
     Route: 042
  7. PEG-ASPARAGINASE [Suspect]
     Indication: NON-HODGKIN^S LYMPHOMA
     Route: 030
  8. DAUNORUBICIN [Suspect]
     Indication: NON-HODGKIN^S LYMPHOMA
     Dates: end: 20140207
  9. PREDNISONE [Suspect]
     Indication: NON-HODGKIN^S LYMPHOMA
  10. RADIATION [Concomitant]
     Indication: NON-HODGKIN^S LYMPHOMA
     Route: 061
  11. TRICOR [Concomitant]
     Indication: BLOOD TRIGLYCERIDES INCREASED
     Dosage: 48MG PER DAY
     Route: 048

REACTIONS (1)
  - Hypertriglyceridaemia [Not Recovered/Not Resolved]
